FAERS Safety Report 16640957 (Version 2)
Quarter: 2019Q3

REPORT INFORMATION
  Report Type: Spontaneous
  Country: US (occurrence: US)
  Receive Date: 20190729
  Receipt Date: 20190815
  Transmission Date: 20191004
  Serious: Yes (Hospitalization, Disabling, Other)
  Sender: FDA-Public Use
  Company Number: US-009507513-1907USA014547

PATIENT
  Age: 73 Year
  Sex: Female

DRUGS (13)
  1. ANASTROZOLE. [Suspect]
     Active Substance: ANASTROZOLE
     Indication: BREAST CANCER
     Dosage: 1 MILLIGRAM, DAILY
     Route: 048
     Dates: start: 20170919, end: 20190612
  2. CHOLECALCIFEROL [Suspect]
     Active Substance: CHOLECALCIFEROL
     Dosage: UNK
  3. PALBOCICLIB [Suspect]
     Active Substance: PALBOCICLIB
     Dosage: 125 MILLIGRAM, 1X/DAY
     Route: 048
     Dates: start: 20190612
  4. ONE-A-DAY WOMENS 50 PLUS ADVANTAGE [Suspect]
     Active Substance: GINKGO\MINERALS\VITAMINS
     Indication: SUPPLEMENTATION THERAPY
     Dosage: 400 MICROGRAM, DAILY
     Dates: start: 19770101
  5. PRINIVIL [Suspect]
     Active Substance: LISINOPRIL
     Indication: BLOOD PRESSURE MANAGEMENT
     Dosage: 20 MILLIGRAM,DAILY
     Route: 048
     Dates: start: 20110523
  6. PALBOCICLIB [Suspect]
     Active Substance: PALBOCICLIB
     Dosage: 125 MILLIGRAM, 1X/DAY
     Route: 048
  7. PALBOCICLIB [Suspect]
     Active Substance: PALBOCICLIB
     Dosage: 125 MILLIGRAM, QD
     Route: 048
     Dates: start: 20190620
  8. OMEGA-3 ACIDS [Suspect]
     Active Substance: OMEGA-3 FATTY ACIDS
  9. ANASTROZOLE. [Suspect]
     Active Substance: ANASTROZOLE
     Dosage: 1 MILLIGRAM, QD
     Route: 048
     Dates: start: 20190620
  10. PALBOCICLIB [Suspect]
     Active Substance: PALBOCICLIB
     Indication: BREAST CANCER
     Dosage: 125 MILLIGRAM, 1X/DAY
     Route: 048
     Dates: start: 20170919
  11. CALCIUM CARBONATE. [Suspect]
     Active Substance: CALCIUM CARBONATE
     Indication: ROUTINE HEALTH MAINTENANCE
     Dosage: 600 MILLIGRAM,DAILY
     Route: 048
     Dates: start: 19770101
  12. POTASSIUM CHLORIDE. [Suspect]
     Active Substance: POTASSIUM CHLORIDE
     Dosage: UNK
  13. ASPIRIN. [Suspect]
     Active Substance: ASPIRIN
     Route: 048

REACTIONS (10)
  - Acute kidney injury [Recovered/Resolved]
  - Essential hypertension [Unknown]
  - Hypotension [Unknown]
  - Hyperlipidaemia [Not Recovered/Not Resolved]
  - Influenza like illness [Unknown]
  - Blood creatinine increased [Unknown]
  - Shock [Unknown]
  - Hypophagia [Recovered/Resolved]
  - Fatigue [Unknown]
  - Hypovolaemia [Unknown]

NARRATIVE: CASE EVENT DATE: 20150512
